FAERS Safety Report 24406864 (Version 2)
Quarter: 2025Q1

REPORT INFORMATION
  Report Type: Spontaneous
  Country: CA (occurrence: CA)
  Receive Date: 20241007
  Receipt Date: 20250226
  Transmission Date: 20250408
  Serious: Yes (Life-Threatening, Hospitalization, Other)
  Sender: SANDOZ
  Company Number: CA-SZ09-PHHY2016CA005060

PATIENT
  Age: 32 Year
  Sex: Female

DRUGS (16)
  1. FENTANYL CITRATE [Suspect]
     Active Substance: FENTANYL CITRATE
     Indication: Spinal anaesthesia
     Route: 037
  2. FENTANYL CITRATE [Suspect]
     Active Substance: FENTANYL CITRATE
     Indication: Caesarean section
     Route: 065
  3. BUPIVACAINE HYDROCHLORIDE [Suspect]
     Active Substance: BUPIVACAINE HYDROCHLORIDE
     Indication: Product used for unknown indication
     Route: 065
  4. MORPHINE SULFATE [Suspect]
     Active Substance: MORPHINE SULFATE
     Indication: Spinal anaesthesia
     Route: 037
  5. MORPHINE SULFATE [Suspect]
     Active Substance: MORPHINE SULFATE
     Indication: Caesarean section
     Route: 065
  6. PHENYLEPHRINE HYDROCHLORIDE [Suspect]
     Active Substance: PHENYLEPHRINE HYDROCHLORIDE
     Route: 042
  7. PHENYLEPHRINE HYDROCHLORIDE [Suspect]
     Active Substance: PHENYLEPHRINE HYDROCHLORIDE
     Route: 041
  8. PHENYLEPHRINE HYDROCHLORIDE [Suspect]
     Active Substance: PHENYLEPHRINE HYDROCHLORIDE
     Route: 041
  9. PHENYLEPHRINE HYDROCHLORIDE [Suspect]
     Active Substance: PHENYLEPHRINE HYDROCHLORIDE
     Indication: Spinal anaesthesia
     Route: 042
  10. ATROPINE [Concomitant]
     Active Substance: ATROPINE
     Indication: Hypotension
     Route: 040
  11. ATROPINE [Concomitant]
     Active Substance: ATROPINE
     Indication: Bradycardia
  12. BUPIVACAINE [Concomitant]
     Active Substance: BUPIVACAINE
     Indication: Caesarean section
     Route: 037
  13. EPHEDRINE [Concomitant]
     Active Substance: EPHEDRINE
     Indication: Bradycardia
     Route: 040
  14. EPHEDRINE [Concomitant]
     Active Substance: EPHEDRINE
     Indication: Hypotension
     Route: 065
  15. EPHEDRINE [Concomitant]
     Active Substance: EPHEDRINE
     Indication: Spinal anaesthesia
     Route: 065
  16. BUPIVACAINE HYDROCHLORIDE [Concomitant]
     Active Substance: BUPIVACAINE HYDROCHLORIDE
     Indication: Spinal anaesthesia
     Route: 065

REACTIONS (9)
  - Bradycardia [Recovered/Resolved]
  - Anterior spinal artery syndrome [Recovered/Resolved with Sequelae]
  - Neuralgia [Not Recovered/Not Resolved]
  - Paralysis [Recovered/Resolved]
  - Rhythm idioventricular [Recovered/Resolved]
  - Spinal cord injury [Recovered/Resolved with Sequelae]
  - Hypotension [Recovered/Resolved]
  - Urinary retention [Recovered/Resolved]
  - Maternal exposure during pregnancy [Unknown]
